FAERS Safety Report 5893355-2 (Version None)
Quarter: 2008Q3

REPORT INFORMATION
  Report Type: 
  Country: None (occurrence: None)
  Receive Date: 20080919
  Receipt Date: 20080910
  Transmission Date: 20090109
  Serious: Yes (Death)
  Sender: FDA-Public Use
  Company Number: 20220

PATIENT
  Age: 29 Year
  Sex: Female
  Weight: 30 kg

DRUGS (4)
  1. CITALOXAN [Suspect]
     Indication: HODGKIN'S DISEASE
     Dosage: 3240 MG PER_ CYCLE  IV
     Route: 042
     Dates: start: 20080224, end: 20080224
  2. ETOPOSIDE [Concomitant]
  3. METHYLPREDNISOLONE [Concomitant]
  4. CISPLATIN [Concomitant]

REACTIONS (9)
  - ACUTE RESPIRATORY FAILURE [None]
  - CYANOSIS [None]
  - DYSPNOEA [None]
  - FIBRIN D DIMER INCREASED [None]
  - HAEMOCONCENTRATION [None]
  - HYPOXIA [None]
  - LEUKOCYTOSIS [None]
  - LUNG INFILTRATION [None]
  - VOMITING [None]
